FAERS Safety Report 23779786 (Version 1)
Quarter: 2024Q2

REPORT INFORMATION
  Report Type: Spontaneous
  Country: US (occurrence: None)
  Receive Date: 20240424
  Receipt Date: 20240424
  Transmission Date: 20240716
  Serious: Yes (Other)
  Sender: FDA-Public Use
  Company Number: None

PATIENT
  Sex: Male

DRUGS (6)
  1. KOVALTRY [Suspect]
     Active Substance: ANTIHEMOPHILIC FACTOR, HUMAN RECOMBINANT
     Indication: Anal cancer
     Dosage: FREQ: KOVALTRY 3222 UNITSNIAL, 1 VIAL. INFUSE ONE 2095 UNIT VIAL AND ONE 3222 UNIT VIAL (5317 UNITS
     Route: 042
     Dates: start: 20240411
  2. MONOJECT PHARMA GRADE [Concomitant]
  3. SODIUM CHLORIDE [Concomitant]
     Active Substance: SODIUM CHLORIDE
  4. SODIUM CHLORIDE [Concomitant]
     Active Substance: SODIUM CHLORIDE
  5. SODIUM CHLORIDE [Concomitant]
     Active Substance: SODIUM CHLORIDE
  6. SODIUM CHLORIDE [Concomitant]
     Active Substance: SODIUM CHLORIDE

REACTIONS (4)
  - Anal fissure [None]
  - Anal cancer [None]
  - Pain [None]
  - Anal fissure haemorrhage [None]
